FAERS Safety Report 5298857-8 (Version None)
Quarter: 2007Q2

REPORT INFORMATION
  Report Type: 
  Country: None (occurrence: None)
  Receive Date: 20070417
  Receipt Date: 20070413
  Transmission Date: 20071010
  Serious: Yes (Other)
  Sender: FDA-Public Use
  Company Number: US-BRISTOL-MYERS SQUIBB COMPANY-13747852

PATIENT
  Age: 55 Year
  Sex: Female

DRUGS (8)
  1. KENALOG-40 [Suspect]
     Dates: start: 20070403
  2. NAPROXEN [Concomitant]
  3. ASCORBIC ACID [Concomitant]
  4. VITAMIN D [Concomitant]
  5. VITAMIN E [Concomitant]
  6. VITAMIN A [Concomitant]
  7. VITAMIN B-12 [Concomitant]
  8. CALCIUM [Concomitant]

REACTIONS (3)
  - COUGH [None]
  - DIZZINESS [None]
  - RASH [None]
